FAERS Safety Report 24648988 (Version 2)
Quarter: 2025Q3

REPORT INFORMATION
  Report Type: Report from Study
  Country: US (occurrence: US)
  Receive Date: 20241121
  Receipt Date: 20250810
  Transmission Date: 20251021
  Serious: Yes (Disabling, Other)
  Sender: ALEXION PHARMACEUTICALS
  Company Number: US-AstraZeneca-CH-00747558A

PATIENT
  Sex: Male

DRUGS (1)
  1. DAPAGLIFLOZIN [Suspect]
     Active Substance: DAPAGLIFLOZIN

REACTIONS (6)
  - Diabetic retinopathy [Unknown]
  - Diabetic nephropathy [Unknown]
  - Cataract [Unknown]
  - Disease risk factor [Unknown]
  - Product use issue [Unknown]
  - Disability [Unknown]
